FAERS Safety Report 6492035-2 (Version None)
Quarter: 2009Q4

REPORT INFORMATION
  Report Type: 
  Country: None (occurrence: None)
  Receive Date: 20091208
  Receipt Date: 20091127
  Transmission Date: 20100525
  Serious: Yes (Other)
  Sender: FDA-Public Use
  Company Number: 2009SP038443

PATIENT
  Age: 4 Year
  Sex: Female
  Weight: 16 kg

DRUGS (4)
  1. DESLORATADINE [Suspect]
     Indication: NASOPHARYNGITIS
     Dosage: ;QD;UNK
     Dates: start: 20091116, end: 20091125
  2. SINGULAIR [Suspect]
     Indication: NASOPHARYNGITIS
     Dosage: 5 MG;BID;UNK
     Dates: start: 20091116
  3. AUGMENTIN ES-600 [Suspect]
     Indication: NASOPHARYNGITIS
     Dosage: ;BID;UNK
     Dates: start: 20091118, end: 20091201
  4. NASONEX [Suspect]
     Indication: NASOPHARYNGITIS
     Dosage: ;BID;NAS
     Route: 045
     Dates: start: 20091107

REACTIONS (2)
  - DIPLOPIA [None]
  - STRABISMUS [None]
